FAERS Safety Report 5458036-8 (Version None)
Quarter: 2007Q3

REPORT INFORMATION
  Report Type: 
  Country: None (occurrence: None)
  Receive Date: 20070919
  Receipt Date: 20070917
  Transmission Date: 20080115
  Serious: Yes (Other)
  Sender: FDA-Public Use
  Company Number: PHNR2007AU01832

PATIENT
  Age: 80 Year
  Sex: Female

DRUGS (2)
  1. AREDIA [Suspect]
  2. ZOMETA [Suspect]
     Indication: METASTASES TO BONE

REACTIONS (5)
  - ABSCESS [None]
  - OSTEONECROSIS [None]
  - PAIN [None]
  - SWELLING [None]
  - WOUND SECRETION [None]
